FAERS Safety Report 16554815 (Version 1)
Quarter: 2019Q3

REPORT INFORMATION
  Report Type: Spontaneous
  Country: SE (occurrence: SE)
  Receive Date: 20190710
  Receipt Date: 20190710
  Transmission Date: 20191004
  Serious: Yes (Death, Life-Threatening, Hospitalization)
  Sender: FDA-Public Use
  Company Number: SE-MYLANLABS-2019M1064267

PATIENT
  Age: 56 Year
  Sex: Male

DRUGS (9)
  1. HUMIRA [Concomitant]
     Active Substance: ADALIMUMAB
     Dosage: UNK
  2. REMICADE [Concomitant]
     Active Substance: INFLIXIMAB
     Dosage: UNK
     Dates: start: 2008
  3. SIMPONI [Suspect]
     Active Substance: GOLIMUMAB
     Indication: ANKYLOSING SPONDYLITIS
     Dosage: UNK (DOSAGE FORM: LIQUID)
     Route: 058
     Dates: start: 20111003
  4. CRESTOR [Suspect]
     Active Substance: ROSUVASTATIN CALCIUM
     Indication: ILL-DEFINED DISORDER
     Dosage: 20 MILLIGRAM, QD (DOSAGE FORM: FILM COATED TABLET)
     Route: 048
     Dates: start: 20111003, end: 20111029
  5. PRONAXEN [Concomitant]
     Active Substance: NAPROXEN
     Dosage: UNK
  6. PRONAXEN [Suspect]
     Active Substance: NAPROXEN
     Indication: ILL-DEFINED DISORDER
     Dosage: 500 MILLIGRAM, QD
     Route: 065
  7. METOPROLOL. [Suspect]
     Active Substance: METOPROLOL
     Indication: ILL-DEFINED DISORDER
     Dosage: 50 MILLIGRAM, QD (DOSAGE FORM: PROLONGED-RELEASE TABLET)
     Route: 065
  8. SALAZOPYRIN [Concomitant]
     Active Substance: SULFASALAZINE
     Dosage: UNK
  9. ENBREL [Concomitant]
     Active Substance: ETANERCEPT
     Dosage: UNK

REACTIONS (3)
  - Presyncope [Fatal]
  - Cholecystitis [Fatal]
  - Cardiac failure acute [Fatal]

NARRATIVE: CASE EVENT DATE: 20111003
